FAERS Safety Report 6338744-7 (Version None)
Quarter: 2009Q3

REPORT INFORMATION
  Report Type: 
  Country: None (occurrence: None)
  Receive Date: 20090903
  Receipt Date: 20090902
  Transmission Date: 20100115
  Serious: Yes (Hospitalization)
  Sender: FDA-Public Use
  Company Number: FR-WYE-G03850209

PATIENT
  Sex: Male
  Weight: 62 kg

DRUGS (1)
  1. TORISEL [Suspect]
     Indication: RENAL CANCER
     Route: 042
     Dates: start: 20090319

REACTIONS (1)
  - TYPE 1 DIABETES MELLITUS [None]
